FAERS Safety Report 25741154 (Version 1)
Quarter: 2025Q3

REPORT INFORMATION
  Report Type: Spontaneous
  Country: US (occurrence: None)
  Receive Date: 20250829
  Receipt Date: 20250829
  Transmission Date: 20251021
  Serious: Yes (Hospitalization)
  Sender: FDA-CTU
  Company Number: None

PATIENT
  Sex: Female

DRUGS (11)
  1. TEZSPIRE [Suspect]
     Active Substance: TEZEPELUMAB-EKKO
     Indication: Asthma
     Dosage: INJECT 1 PEN UNDER THE SKIN (SUBCUTANEOUS INJECTION) EVERY 4 WEEKS?
     Route: 058
     Dates: start: 20230712
  2. AZELASTINE ORO 0.05% [Concomitant]
  3. AZELASTINE SPR0.1^% [Concomitant]
  4. BENZONATATE CAP 100MG [Concomitant]
  5. BREO ELLIPTA INH 200-25 [Concomitant]
  6. BUDESONIDE SUS 0.5MG/2 [Concomitant]
  7. CETIRIZINE HCL [Concomitant]
     Active Substance: CETIRIZINE HYDROCHLORIDE
  8. CHILD ASA CHW81MG [Concomitant]
  9. COMBIVENT AER 20-100 [Concomitant]
  10. DULOXETINE CAP 30MG [Concomitant]
  11. EPINEPHRINE INJ 0.3MG [Concomitant]

REACTIONS (1)
  - Asthma [None]
